FAERS Safety Report 21932295 (Version 1)
Quarter: 2023Q1

REPORT INFORMATION
  Report Type: Spontaneous
  Country: US (occurrence: US)
  Receive Date: 20230131
  Receipt Date: 20230131
  Transmission Date: 20230418
  Serious: No
  Sender: FDA-Public Use
  Company Number: US-PFIZER INC-202300039540

PATIENT
  Age: 45 Year
  Sex: Female

DRUGS (2)
  1. IBRANCE [Suspect]
     Active Substance: PALBOCICLIB
     Indication: Breast cancer metastatic
     Dosage: 125 MG, CYCLIC (ONCE DAILY DAYS 1 THROUGH 21 FOLLOWED BY 7 DAYS OFF. 28 DAY CYCLE)
     Route: 048
     Dates: start: 20221208
  2. CALCIUM [Concomitant]
     Active Substance: CALCIUM
     Dosage: UNK

REACTIONS (4)
  - White blood cell count decreased [Recovering/Resolving]
  - Stomatitis [Unknown]
  - Sinusitis [Recovering/Resolving]
  - Bronchitis [Recovering/Resolving]
